FAERS Safety Report 11437679 (Version 1)
Quarter: 2015Q3

REPORT INFORMATION
  Report Type: Spontaneous
  Country: US (occurrence: US)
  Receive Date: 20150821
  Receipt Date: 20150821
  Transmission Date: 20151125
  Serious: No
  Sender: FDA-Public Use
  Company Number: US-ELI_LILLY_AND_COMPANY-US200706002411

PATIENT
  Sex: Male

DRUGS (14)
  1. CYMBALTA [Suspect]
     Active Substance: DULOXETINE HYDROCHLORIDE
     Indication: PARAESTHESIA
     Dosage: 60 MG, 2/D
     Route: 048
     Dates: start: 2007
  2. ALTACE [Concomitant]
     Active Substance: RAMIPRIL
     Dosage: 10 MG, UNK
  3. COREG [Concomitant]
     Active Substance: CARVEDILOL
     Dosage: 12.5 MG, 2/D
  4. NEURONTIN [Concomitant]
     Active Substance: GABAPENTIN
     Indication: PARAESTHESIA
     Dosage: 300 MG, 3/D
  5. NOVOLOG MIX 70/30 [Concomitant]
     Active Substance: INSULIN ASPART
     Dosage: 60 U, 2/D
  6. ASPIRIN. [Concomitant]
     Active Substance: ASPIRIN
  7. ZOLOFT [Concomitant]
     Active Substance: SERTRALINE HYDROCHLORIDE
  8. VYTORIN [Concomitant]
     Active Substance: EZETIMIBE\SIMVASTATIN
  9. ZANTAC [Concomitant]
     Active Substance: RANITIDINE HYDROCHLORIDE
     Dosage: 150 MG, UNKNOWN
  10. OMACOR [Concomitant]
     Active Substance: OMEGA-3-ACID ETHYL ESTERS
  11. SPIRONOLACTONE. [Concomitant]
     Active Substance: SPIRONOLACTONE
  12. FOLIC ACID. [Concomitant]
     Active Substance: FOLIC ACID
     Dosage: 1 MG, UNK
  13. AMBIEN [Concomitant]
     Active Substance: ZOLPIDEM TARTRATE
     Dosage: 5 MG, EACH EVENING
  14. CATAPRES [Concomitant]
     Active Substance: CLONIDINE HYDROCHLORIDE

REACTIONS (4)
  - Blood glucose fluctuation [Not Recovered/Not Resolved]
  - Weight decreased [Not Recovered/Not Resolved]
  - Breast tenderness [Not Recovered/Not Resolved]
  - Constipation [Not Recovered/Not Resolved]
